FAERS Safety Report 20691456 (Version 1)
Quarter: 2022Q2

REPORT INFORMATION
  Report Type: Spontaneous
  Country: US (occurrence: None)
  Receive Date: 20220406
  Receipt Date: 20220406
  Transmission Date: 20220721
  Serious: Yes (Hospitalization)
  Sender: FDA-Public Use
  Company Number: None

PATIENT
  Sex: Male
  Weight: 120.2 kg

DRUGS (6)
  1. DEFERASIROX [Suspect]
     Active Substance: DEFERASIROX
     Indication: Myelodysplastic syndrome
     Dosage: 720MG DAILY ORAL?
     Route: 048
     Dates: start: 20200513
  2. DACOGEN [Concomitant]
     Active Substance: DECITABINE
  3. ZOFRAN [Concomitant]
     Active Substance: ONDANSETRON HYDROCHLORIDE
  4. PROCRIT [Concomitant]
     Active Substance: ERYTHROPOIETIN
  5. TYLENOL [Concomitant]
     Active Substance: ACETAMINOPHEN
  6. MINERALS\VITAMINS [Concomitant]
     Active Substance: MINERALS\VITAMINS

REACTIONS (2)
  - Therapy interrupted [None]
  - Cardiac disorder [None]
